FAERS Safety Report 8099163 (Version 7)
Quarter: 2013Q1

REPORT INFORMATION
  Report Type: Spontaneous
  Country: US (occurrence: US)
  Receive Date: 20110822
  Receipt Date: 20130218
  Transmission Date: 20140127
  Serious: Yes (Hospitalization)
  Sender: FDA-Public Use
  Company Number: US-BIOGENIDEC-2011BI030903

PATIENT
  Sex: Male

DRUGS (1)
  1. TYSABRI [Suspect]
     Indication: MULTIPLE SCLEROSIS
     Route: 042
     Dates: start: 20100518, end: 20120425

REACTIONS (4)
  - Localised infection [Not Recovered/Not Resolved]
  - Wound infection staphylococcal [Recovered/Resolved]
  - Bacterial disease carrier [Unknown]
  - Osteomyelitis chronic [Not Recovered/Not Resolved]
